FAERS Safety Report 5944334-8 (Version None)
Quarter: 2008Q4

REPORT INFORMATION
  Report Type: 
  Country: None (occurrence: None)
  Receive Date: 20081105
  Receipt Date: 20081021
  Transmission Date: 20090506
  Serious: Yes (Hospitalization)
  Sender: FDA-Public Use
  Company Number: 002#1#2008-00264

PATIENT
  Age: 55 Year
  Sex: Female
  Weight: 90.7194 kg

DRUGS (2)
  1. NEUPRO [Suspect]
     Indication: DRUG USE FOR UNKNOWN INDICATION
     Dosage: 4MG/24H, 1 IN 1 D, TRANSDERMAL
     Route: 062
     Dates: start: 20080101
  2. HYZAAR [Concomitant]

REACTIONS (8)
  - ANOREXIA [None]
  - ARTHRALGIA [None]
  - CHOLELITHIASIS [None]
  - GALLBLADDER DISORDER [None]
  - INFLUENZA [None]
  - NAUSEA [None]
  - RENAL FAILURE [None]
  - RESPIRATORY RATE DECREASED [None]
